FAERS Safety Report 14946606 (Version 1)
Quarter: 2018Q2

REPORT INFORMATION
  Report Type: Spontaneous
  Country: CN (occurrence: CN)
  Receive Date: 20180529
  Receipt Date: 20180529
  Transmission Date: 20180711
  Serious: Yes (Other)
  Sender: FDA-Public Use
  Company Number: PHHY2018CN009776

PATIENT
  Age: 24 Year
  Sex: Female

DRUGS (2)
  1. ZOLEDRONIC ACID [Suspect]
     Active Substance: ZOLEDRONIC ACID
     Indication: HYPERCALCAEMIA
  2. ZOLEDRONIC ACID [Suspect]
     Active Substance: ZOLEDRONIC ACID
     Indication: OSTEOPOROSIS
     Dosage: 5 MG, UNK
     Route: 042

REACTIONS (7)
  - Hypocalcaemia [Recovering/Resolving]
  - Hypoaesthesia [Unknown]
  - Seizure [Unknown]
  - Tetany [Unknown]
  - Hypokalaemia [Recovering/Resolving]
  - Dyspnoea [Unknown]
  - Myalgia [Unknown]
